FAERS Safety Report 5276350-6 (Version None)
Quarter: 2007Q1

REPORT INFORMATION
  Report Type: 
  Country: None (occurrence: None)
  Receive Date: 20070326
  Receipt Date: 20070314
  Transmission Date: 20070707
  Serious: Yes (Other)
  Sender: FDA-Public Use
  Company Number: NL-PFIZER INC-2007020892

PATIENT

DRUGS (5)
  1. NIFEDIPINE [Suspect]
     Indication: TOCOLYSIS
     Dosage: DAILY DOSE:100MG
     Route: 064
  2. ATOSIBAN [Suspect]
     Route: 064
  3. INDOMETHACIN [Suspect]
     Route: 064
  4. CORTICOSTEROIDS [Suspect]
     Route: 064
  5. ANTIBIOTICS [Suspect]
     Route: 064

REACTIONS (2)
  - DRUG EXPOSURE DURING PREGNANCY [None]
  - PREMATURE BABY [None]
